FAERS Safety Report 6122932-9 (Version None)
Quarter: 2009Q1

REPORT INFORMATION
  Report Type: 
  Country: None (occurrence: None)
  Receive Date: 20090318
  Receipt Date: 20090309
  Transmission Date: 20090719
  Serious: Yes (Other)
  Sender: FDA-Public Use
  Company Number: PHHY2009PL08468

PATIENT
  Sex: Female

DRUGS (2)
  1. VOLTAREN [Suspect]
     Indication: SYNOVIAL CYST
     Dosage: 100 MG, QD
     Route: 065
  2. VOLTAREN [Suspect]
     Indication: OEDEMA PERIPHERAL

REACTIONS (1)
  - PHARYNGEAL HAEMORRHAGE [None]
